FAERS Safety Report 24631842 (Version 2)
Quarter: 2024Q4

REPORT INFORMATION
  Report Type: Spontaneous
  Country: IL (occurrence: IL)
  Receive Date: 20241118
  Receipt Date: 20241129
  Transmission Date: 20250115
  Serious: Yes (Death, Other)
  Sender: TEVA
  Company Number: IL-TEVA-VS-3264207

PATIENT
  Age: 6 Year
  Sex: Male

DRUGS (1)
  1. METHOTREXATE [Suspect]
     Active Substance: METHOTREXATE
     Indication: Osteosarcoma metastatic
     Route: 065

REACTIONS (3)
  - Drug ineffective [Fatal]
  - Toxicity to various agents [Unknown]
  - Mucosal inflammation [Unknown]
